FAERS Safety Report 11080482 (Version 1)
Quarter: 2015Q2

REPORT INFORMATION
  Report Type: Spontaneous
  Country: US (occurrence: US)
  Receive Date: 20150430
  Receipt Date: 20150430
  Transmission Date: 20150821
  Serious: No
  Sender: FDA-Public Use
  Company Number: US-009507513-1504USA024120

PATIENT
  Sex: Female
  Weight: 92 kg

DRUGS (3)
  1. COPPERTONE [Suspect]
     Active Substance: OCTINOXATE\OCTOCRYLENE
     Indication: PHOTOSENSITIVITY REACTION
     Dosage: 1 DF, PRN
     Route: 061
     Dates: start: 2012
  2. ALLEGRA [Concomitant]
     Active Substance: FEXOFENADINE HYDROCHLORIDE
  3. FLONASE [Concomitant]
     Active Substance: FLUTICASONE PROPIONATE

REACTIONS (1)
  - Eye irritation [Recovered/Resolved]

NARRATIVE: CASE EVENT DATE: 2012
